FAERS Safety Report 17917809 (Version 2)
Quarter: 2020Q3

REPORT INFORMATION
  Report Type: Report from Study
  Country: IT (occurrence: IT)
  Receive Date: 20200619
  Receipt Date: 20200821
  Transmission Date: 20201103
  Serious: Yes (Hospitalization)
  Sender: FDA-Public Use
  Company Number: IT-PFIZER INC-2020238864

PATIENT
  Age: 56 Year
  Sex: Female
  Weight: 103 kg

DRUGS (15)
  1. IRINOTECAN HCL [Suspect]
     Active Substance: IRINOTECAN HYDROCHLORIDE
     Indication: COLORECTAL CANCER METASTATIC
     Dosage: 360 MG, QOW
     Route: 042
     Dates: start: 20200512, end: 20200512
  2. CERCHIO [Concomitant]
     Active Substance: CETIRIZINE HYDROCHLORIDE
     Indication: PRURITUS
     Dosage: 10 MG, 1X/DAY
     Route: 048
     Dates: start: 20200424
  3. FLUOROURACIL. [Suspect]
     Active Substance: FLUOROURACIL
     Dosage: 4800 MG, QOW
     Route: 041
     Dates: start: 20200512, end: 20200512
  4. IRINOTECAN HCL [Suspect]
     Active Substance: IRINOTECAN HYDROCHLORIDE
     Dosage: 360 MG, QOW
     Route: 042
     Dates: start: 20200330, end: 20200330
  5. PANTOPRAZOLE [Concomitant]
     Active Substance: PANTOPRAZOLE
     Indication: PROPHYLAXIS
     Dosage: 40 MG, 1X/DAY
     Route: 048
     Dates: start: 20190318
  6. LOPERAMIDE [Concomitant]
     Active Substance: LOPERAMIDE
     Indication: DIARRHOEA
     Dosage: UNK
  7. FOLINIC ACID [Suspect]
     Active Substance: LEUCOVORIN
     Indication: COLORECTAL CANCER METASTATIC
     Dosage: 400 MG, QOW
     Route: 042
     Dates: start: 20200330, end: 20200330
  8. FOLINIC ACID [Suspect]
     Active Substance: LEUCOVORIN
     Dosage: 400 MG, QOW
     Route: 042
     Dates: start: 20200512, end: 20200512
  9. LYRICA [Concomitant]
     Active Substance: PREGABALIN
     Indication: PAIN
     Dosage: 25 MG, 2X/DAY
     Route: 048
     Dates: start: 20191029
  10. AFLIBERCEPT [Suspect]
     Active Substance: AFLIBERCEPT
     Indication: COLORECTAL CANCER METASTATIC
     Dosage: 4 MG/KG, QOW (EVERY 14 DAYS)
     Route: 042
     Dates: start: 20200512, end: 20200512
  11. FLUOROURACIL. [Suspect]
     Active Substance: FLUOROURACIL
     Indication: COLORECTAL CANCER METASTATIC
     Dosage: 800 MG, QOW
     Route: 040
     Dates: start: 20200330, end: 20200330
  12. FLUOROURACIL. [Suspect]
     Active Substance: FLUOROURACIL
     Dosage: 800 MG, QOW
     Route: 040
     Dates: start: 20200512, end: 20200512
  13. EN [Concomitant]
     Active Substance: DELORAZEPAM
     Indication: ANXIETY
     Dosage: 10?15 DROPS, DAILY
     Route: 048
     Dates: start: 20200522
  14. AFLIBERCEPT [Suspect]
     Active Substance: AFLIBERCEPT
     Dosage: 4 MG/KG, QOW (EVERY 14 DAYS)
     Route: 042
     Dates: start: 20200330, end: 20200330
  15. FLUOROURACIL. [Suspect]
     Active Substance: FLUOROURACIL
     Dosage: 4800 MG, QOW
     Route: 041
     Dates: start: 20200330, end: 20200330

REACTIONS (2)
  - Skin toxicity [Recovered/Resolved]
  - Mucosal toxicity [Recovered/Resolved]

NARRATIVE: CASE EVENT DATE: 20200520
